FAERS Safety Report 21867436 (Version 1)
Quarter: 2023Q1

REPORT INFORMATION
  Report Type: Spontaneous
  Country: US (occurrence: US)
  Receive Date: 20230116
  Receipt Date: 20230116
  Transmission Date: 20230417
  Serious: Yes (Other)
  Sender: FDA-Public Use
  Company Number: US-ORGANON-O2301USA000701

PATIENT
  Age: 32 Year
  Sex: Female

DRUGS (1)
  1. NEXPLANON [Suspect]
     Active Substance: ETONOGESTREL
     Indication: Contraception
     Dosage: 1 IMPLANT (1 DOSAGE FORM) IN LEFT ARM
     Route: 059

REACTIONS (4)
  - Device dislocation [Not Recovered/Not Resolved]
  - Pain in extremity [Not Recovered/Not Resolved]
  - Complication associated with device [Not Recovered/Not Resolved]
  - Complication of device removal [Not Recovered/Not Resolved]

NARRATIVE: CASE EVENT DATE: 20221201
